FAERS Safety Report 7066486-1 (Version None)
Quarter: 2010Q4

REPORT INFORMATION
  Report Type: 
  Country: None (occurrence: None)
  Receive Date: 20101027
  Receipt Date: 20100402
  Transmission Date: 20110411
  Serious: No
  Sender: FDA-Public Use
  Company Number: US-WYE-H14510710

PATIENT
  Sex: Female

DRUGS (1)
  1. PREMPRO [Suspect]
     Route: 048
     Dates: start: 20100302

REACTIONS (1)
  - METRORRHAGIA [None]
